FAERS Safety Report 18133134 (Version 16)
Quarter: 2021Q2

REPORT INFORMATION
  Report Type: Report from Study
  Country: PL (occurrence: PL)
  Receive Date: 20200811
  Receipt Date: 20210513
  Transmission Date: 20210717
  Serious: Yes (Hospitalization)
  Sender: FDA-Public Use
  Company Number: PL-ROCHE-2652743

PATIENT
  Age: 65 Year
  Sex: Female
  Weight: 55.5 kg

DRUGS (39)
  1. PARACETAMOLUM [Concomitant]
     Active Substance: ACETAMINOPHEN
     Indication: PYREXIA
     Dates: start: 20200701, end: 20200701
  2. OPTILYTE [Concomitant]
     Active Substance: CALCIUM CHLORIDE\MAGNESIUM CHLORIDE\POTASSIUM CHLORIDE\SODIUM ACETATE\SODIUM CHLORIDE\SODIUM CITRATE
     Indication: PYREXIA
     Dates: start: 20200702, end: 20200702
  3. TRIMETOPRIM [Concomitant]
     Active Substance: TRIMETHOPRIM
     Indication: URINARY TRACT INFECTION
     Dates: start: 20200710, end: 20200721
  4. IRON ISOMALTOSIDE 1000 [Concomitant]
     Active Substance: IRON ISOMALTOSIDE 1000
     Indication: HAEMOGLOBIN DECREASED
     Dates: start: 20200708, end: 20200708
  5. PANPRAZOX [Concomitant]
     Indication: GASTRIC ULCER
     Dosage: GIVEN FOR PROPHYLAXIS: YES
     Dates: start: 202004
  6. LYRICA [Concomitant]
     Active Substance: PREGABALIN
     Indication: PAIN PROPHYLAXIS
     Dosage: GIVEN FOR PROPHYLAXIS: YES
     Dates: start: 20200805
  7. PARACETAMOLUM [Concomitant]
     Active Substance: ACETAMINOPHEN
     Indication: PAIN
     Dates: start: 20200702, end: 20200702
  8. PARACETAMOLUM [Concomitant]
     Active Substance: ACETAMINOPHEN
     Dates: start: 20201104
  9. ASERTIN [Concomitant]
     Active Substance: SERTRALINE HYDROCHLORIDE
     Indication: DEPRESSION
     Dates: start: 202003, end: 20200816
  10. VALSACOR [Concomitant]
     Active Substance: VALSARTAN
     Indication: HYPERTENSION
     Dates: start: 2010, end: 20200703
  11. PARACETAMOLUM [Concomitant]
     Active Substance: ACETAMINOPHEN
     Dates: start: 20200723, end: 20200723
  12. METOCLOPRAMIDUM [Concomitant]
     Dates: start: 20200724, end: 20200724
  13. CIPROFLOXACINUM [Concomitant]
     Active Substance: CIPROFLOXACIN
     Indication: URINARY TRACT INFECTION
     Dates: start: 20200708, end: 20200710
  14. TRITTICO [Concomitant]
     Active Substance: TRAZODONE HYDROCHLORIDE
     Indication: INSOMNIA
     Dates: start: 20210307
  15. BISOCARD [Concomitant]
     Active Substance: BISOPROLOL
     Indication: HYPERTENSION
     Dates: start: 2010
  16. CYCLONAMINE [Concomitant]
     Active Substance: ETHAMSYLATE
     Dates: start: 202004
  17. TARGIN [Concomitant]
     Active Substance: NALOXONE HYDROCHLORIDE\OXYCODONE HYDROCHLORIDE
     Indication: PAIN
     Dates: start: 202003
  18. PARACETAMOLUM [Concomitant]
     Active Substance: ACETAMINOPHEN
     Dates: start: 20200827
  19. OPTILYTE [Concomitant]
     Active Substance: CALCIUM CHLORIDE\MAGNESIUM CHLORIDE\POTASSIUM CHLORIDE\SODIUM ACETATE\SODIUM CHLORIDE\SODIUM CITRATE
     Dates: start: 20200703, end: 20200703
  20. OPTILYTE [Concomitant]
     Active Substance: CALCIUM CHLORIDE\MAGNESIUM CHLORIDE\POTASSIUM CHLORIDE\SODIUM ACETATE\SODIUM CHLORIDE\SODIUM CITRATE
     Dates: start: 20200724, end: 20200724
  21. METOCLOPRAMIDUM [Concomitant]
     Indication: VOMITING
     Dates: start: 20200703, end: 20200812
  22. TARDYFERON [Concomitant]
     Active Substance: FERROUS SULFATE
     Indication: HAEMOGLOBIN DECREASED
     Dates: start: 20200804
  23. SULFAMETHOXAZOLE [Concomitant]
     Active Substance: SULFAMETHOXAZOLE
     Indication: URINARY TRACT INFECTION
     Dates: start: 20200710, end: 20200721
  24. EGZYSTA [Concomitant]
     Active Substance: PREGABALIN
     Indication: PAIN PROPHYLAXIS
     Dosage: GIVEN FOR PROPHYLAXIS: YES
     Dates: start: 20200805
  25. ATEZOLIZUMAB. [Suspect]
     Active Substance: ATEZOLIZUMAB
     Indication: METASTATIC NEOPLASM
     Dosage: START DATE OF MOST RECENT DOSE OF STUDY DRUG PRIOR TO AE: 22/JUL/2020 AT START TIME 1:37 PM AND END
     Route: 041
     Dates: start: 20200701
  26. PARACETAMOLUM [Concomitant]
     Active Substance: ACETAMINOPHEN
     Dates: start: 20200818, end: 20200824
  27. BUPRENORPHINE. [Concomitant]
     Active Substance: BUPRENORPHINE
     Indication: PAIN
     Dates: start: 202002, end: 20200816
  28. ITOPRIDI HYDROCHLORIDUM [Concomitant]
     Indication: VOMITING
     Dates: start: 20200805, end: 20200923
  29. ZINNAT [Concomitant]
     Active Substance: CEFUROXIME
     Indication: PROPHYLAXIS
     Dates: start: 20210303, end: 20210315
  30. RO6874281 (FAP IL2V MAB) [Suspect]
     Active Substance: SIMLUKAFUSP ALFA
     Indication: METASTATIC NEOPLASM
     Dosage: START DATE OF MOST RECENT DOSE OF STUDY DRUG 10 MG (4.8 ML) PRIOR TO AE: 22/JUL/2020 START TIME 3:10
     Route: 042
     Dates: start: 20200701
  31. TRITTICO [Concomitant]
     Active Substance: TRAZODONE HYDROCHLORIDE
     Indication: DEPRESSION
     Dates: start: 202003, end: 20200816
  32. HEMOFER PROLONGATUM [Concomitant]
     Active Substance: FERROUS SULFATE ANHYDROUS
     Indication: ANAEMIA
     Dosage: GIVEN FOR PROPHYLAXIS: YES
     Dates: start: 202004
  33. HYDROXYZINE [Concomitant]
     Active Substance: HYDROXYZINE HYDROCHLORIDE
     Indication: DEPRESSION
     Dates: start: 202005, end: 20200923
  34. NEOPARIN [Concomitant]
     Active Substance: ENOXAPARIN SODIUM
     Indication: THROMBOSIS PROPHYLAXIS
     Dosage: GIVEN FOR PROPHYLAXIS: YES
     Dates: start: 20200813
  35. PARACETAMOLUM [Concomitant]
     Active Substance: ACETAMINOPHEN
     Dates: start: 20200703, end: 20200703
  36. OPTILYTE [Concomitant]
     Active Substance: CALCIUM CHLORIDE\MAGNESIUM CHLORIDE\POTASSIUM CHLORIDE\SODIUM ACETATE\SODIUM CHLORIDE\SODIUM CITRATE
     Indication: VOMITING
     Dates: start: 20200701, end: 20200701
  37. SULFAMETHOXAZOLE [Concomitant]
     Active Substance: SULFAMETHOXAZOLE
     Indication: URINARY TRACT INFECTION
     Dates: start: 20200710, end: 20200721
  38. PALEXIA [Concomitant]
     Active Substance: TAPENTADOL HYDROCHLORIDE
     Dates: start: 20210217
  39. SEVREDOL [Concomitant]
     Active Substance: MORPHINE
     Indication: PAIN PROPHYLAXIS
     Dosage: GIVEN FOR PROPHYLAXIS: YES
     Dates: start: 20201118

REACTIONS (2)
  - Vaginal haemorrhage [Not Recovered/Not Resolved]
  - Female genital tract fistula [Not Recovered/Not Resolved]

NARRATIVE: CASE EVENT DATE: 20200722
